FAERS Safety Report 6812625-4 (Version None)
Quarter: 2010Q3

REPORT INFORMATION
  Report Type: 
  Country: None (occurrence: None)
  Receive Date: 20100701
  Receipt Date: 20100621
  Transmission Date: 20110219
  Serious: Yes (Hospitalization)
  Sender: FDA-Public Use
  Company Number: IE-PFIZER INC-2010067176

PATIENT
  Age: 58 Year
  Sex: Female

DRUGS (3)
  1. MYCOBUTIN [Suspect]
     Indication: PATHOGEN RESISTANCE
     Dosage: 150 MG, 2X/DAY
     Route: 048
     Dates: start: 20100427, end: 20100508
  2. NEXIUM [Concomitant]
  3. AMOXICILLIN [Concomitant]

REACTIONS (4)
  - BACK PAIN [None]
  - CONSTIPATION [None]
  - NEUTROPENIA [None]
  - VOMITING [None]
